FAERS Safety Report 19041748 (Version 1)
Quarter: 2021Q1

REPORT INFORMATION
  Report Type: Spontaneous
  Country: US (occurrence: US)
  Receive Date: 20210322
  Receipt Date: 20210322
  Transmission Date: 20210420
  Serious: Yes (Other)
  Sender: FDA-Public Use
  Company Number: US-GLAXOSMITHKLINE-USCH2021AMR012477

PATIENT

DRUGS (1)
  1. NICODERM CQ [Suspect]
     Active Substance: NICOTINE
     Indication: SMOKING CESSATION THERAPY
     Dosage: 21 MG POUCH 14
     Dates: start: 20210109

REACTIONS (8)
  - Suicide attempt [Unknown]
  - Condition aggravated [Unknown]
  - Depression [Unknown]
  - Product complaint [Unknown]
  - Rash [Unknown]
  - Dizziness [Unknown]
  - Product adhesion issue [Unknown]
  - Nightmare [Unknown]
